FAERS Safety Report 12510225 (Version 1)
Quarter: 2016Q2

REPORT INFORMATION
  Report Type: Report from Study
  Country: BR (occurrence: BR)
  Receive Date: 20160629
  Receipt Date: 20160629
  Transmission Date: 20160815
  Serious: Yes (Hospitalization, Other)
  Sender: FDA-Public Use
  Company Number: BR-ABBVIE-16K-020-1659774-00

PATIENT
  Sex: Female
  Weight: 63 kg

DRUGS (3)
  1. METHOTREXATE [Concomitant]
     Active Substance: METHOTREXATE
     Indication: ARTHRITIS
     Dosage: UNKNOWN FREQUENCY
     Route: 048
     Dates: start: 2011
  2. HUMIRA [Suspect]
     Active Substance: ADALIMUMAB
     Indication: RHEUMATOID ARTHRITIS
     Route: 058
     Dates: start: 20160224
  3. METHOTREXATE [Concomitant]
     Active Substance: METHOTREXATE
     Route: 048

REACTIONS (6)
  - Nasal septum deviation [Unknown]
  - Epistaxis [Unknown]
  - Dyspnoea [Recovering/Resolving]
  - Nasal congestion [Unknown]
  - Oropharyngeal pain [Unknown]
  - Snoring [Recovering/Resolving]

NARRATIVE: CASE EVENT DATE: 2016
